FAERS Safety Report 26077979 (Version 1)
Quarter: 2025Q4

REPORT INFORMATION
  Report Type: Spontaneous
  Country: US (occurrence: US)
  Receive Date: 20251122
  Receipt Date: 20251122
  Transmission Date: 20260119
  Serious: No
  Sender: MDD OPERATIONS
  Company Number: US-MDD US Operations-MDD202508-003258

PATIENT
  Age: 74 Year
  Sex: Male
  Weight: 70.3 kg

DRUGS (8)
  1. ONAPGO [Suspect]
     Active Substance: APOMORPHINE HYDROCHLORIDE
     Indication: Parkinson^s disease
     Dosage: 1 MG PER HOUR (11 AND HALF HOURS)
     Dates: start: 20250820
  2. ONAPGO [Suspect]
     Active Substance: APOMORPHINE HYDROCHLORIDE
     Indication: On and off phenomenon
     Dosage: STRENGTH: 98MG/20ML, INFUSE CONTENTS OF 1 CARTRIDGE (98 MG) UNDER THE SKIN FOR 16 HOURS OR LESS EACH
     Dates: start: 202508
  3. ONAPGO [Suspect]
     Active Substance: APOMORPHINE HYDROCHLORIDE
     Dates: start: 20250820
  4. CARBIDOPA\LEVODOPA [Concomitant]
     Active Substance: CARBIDOPA\LEVODOPA
     Dosage: NOT PROVIDED
  5. RYTARY [Concomitant]
     Active Substance: CARBIDOPA\LEVODOPA
     Dosage: 25.75/95 - 3 CAPSULES 4 TIMES A DAY
  6. AMANTADINE [Concomitant]
     Active Substance: AMANTADINE
     Dosage: 100 MG ONCE DAILY
  7. PROPRANOLOL [Concomitant]
     Active Substance: PROPRANOLOL HYDROCHLORIDE
     Dosage: 1MG - 3 TIMES A DAY
  8. ROPINIROLE [Concomitant]
     Active Substance: ROPINIROLE
     Dosage: NOT PROVIDED

REACTIONS (7)
  - Infusion site erythema [Unknown]
  - Infusion site swelling [Unknown]
  - Infusion site haemorrhage [Unknown]
  - Fatigue [Unknown]
  - Dizziness [Recovered/Resolved]
  - Somnolence [Not Recovered/Not Resolved]
  - Infusion site nodule [Recovered/Resolved]
